FAERS Safety Report 24197251 (Version 4)
Quarter: 2025Q3

REPORT INFORMATION
  Report Type: Report from Study
  Country: US (occurrence: US)
  Receive Date: 20240810
  Receipt Date: 20250820
  Transmission Date: 20251021
  Serious: Yes (Other)
  Sender: AMGEN
  Company Number: US-AMGEN-USASL2024153786

PATIENT
  Age: 56 Year
  Sex: Female
  Weight: 111.57 kg

DRUGS (10)
  1. UPLIZNA [Suspect]
     Active Substance: INEBILIZUMAB-CDON
     Indication: Neuromyelitis optica spectrum disorder
     Route: 042
     Dates: start: 20220627
  2. UPLIZNA [Suspect]
     Active Substance: INEBILIZUMAB-CDON
     Route: 042
     Dates: start: 20240612, end: 20240612
  3. VITAMIN B12 [Concomitant]
     Active Substance: CYANOCOBALAMIN
  4. AMLODIPINE [Concomitant]
     Active Substance: AMLODIPINE BESYLATE
     Dates: start: 20230501
  5. DIVALPROEX SODIUM [Concomitant]
     Active Substance: DIVALPROEX SODIUM
     Dates: start: 20230830
  6. NORTRIPTYLINE [Concomitant]
     Active Substance: NORTRIPTYLINE
     Route: 065
     Dates: start: 20221111
  7. ULTOMIRIS [Concomitant]
     Active Substance: RAVULIZUMAB-CWVZ
     Route: 065
     Dates: start: 20240806
  8. ERGOCALCIFEROL [Concomitant]
     Active Substance: ERGOCALCIFEROL
     Route: 065
     Dates: start: 20240925
  9. MODAFINIL [Concomitant]
     Active Substance: MODAFINIL
     Route: 065
     Dates: start: 20240925
  10. SUMATRIPTAN [Concomitant]
     Active Substance: SUMATRIPTAN
     Dates: start: 20221111

REACTIONS (9)
  - Neuromyelitis optica spectrum disorder [Recovered/Resolved]
  - Gingivitis [Recovered/Resolved]
  - Patella fracture [Recovered/Resolved]
  - Spinal osteoarthritis [Not Recovered/Not Resolved]
  - Adrenal mass [Unknown]
  - Hypertension [Unknown]
  - Migraine [Unknown]
  - COVID-19 [Recovered/Resolved]
  - Arthralgia [Recovered/Resolved]

NARRATIVE: CASE EVENT DATE: 20220101
